FAERS Safety Report 21231466 (Version 1)
Quarter: 2022Q3

REPORT INFORMATION
  Report Type: Spontaneous
  Country: US (occurrence: US)
  Receive Date: 20220819
  Receipt Date: 20220819
  Transmission Date: 20221026
  Serious: No
  Sender: FDA-Public Use
  Company Number: US-BAUSCH-BL-2022-020201

PATIENT
  Age: 32 Year
  Sex: Male
  Weight: 104.42 kg

DRUGS (1)
  1. OPCON-A [Suspect]
     Active Substance: NAPHAZOLINE HYDROCHLORIDE\PHENIRAMINE MALEATE
     Indication: Eye allergy
     Route: 047
     Dates: start: 20220811, end: 20220812

REACTIONS (2)
  - Mydriasis [Unknown]
  - Photophobia [Unknown]

NARRATIVE: CASE EVENT DATE: 20220811
